FAERS Safety Report 8491515-8 (Version None)
Quarter: 2012Q3

REPORT INFORMATION
  Report Type: 
  Country: None (occurrence: None)
  Receive Date: 20120706
  Receipt Date: 20120628
  Transmission Date: 20120928
  Serious: Yes (Hospitalization, Other)
  Sender: FDA-Public Use
  Company Number: JP-JNJFOC-20120601026

PATIENT
  Sex: Female

DRUGS (8)
  1. VANCOMYCIN [Suspect]
     Route: 041
     Dates: start: 20120501, end: 20120501
  2. VANCOMYCIN [Suspect]
     Route: 041
     Dates: start: 20120505, end: 20120508
  3. CEFAZOLIN SODIUM [Concomitant]
     Indication: DIABETIC GANGRENE
     Route: 065
     Dates: start: 20120413, end: 20120422
  4. VANCOMYCIN [Suspect]
     Route: 041
     Dates: start: 20120509, end: 20120527
  5. VANCOMYCIN [Suspect]
     Indication: STAPHYLOCOCCAL INFECTION
     Route: 041
     Dates: start: 20120429, end: 20120430
  6. DORIPENEM MONOHYDRATE [Suspect]
     Indication: PSEUDOMONAS INFECTION
     Route: 041
     Dates: start: 20120516, end: 20120525
  7. VANCOMYCIN [Suspect]
     Route: 041
     Dates: start: 20120427
  8. MEROPENEM [Concomitant]
     Indication: DIABETIC GANGRENE
     Route: 065
     Dates: start: 20120423, end: 20120428

REACTIONS (1)
  - PANCYTOPENIA [None]
